FAERS Safety Report 9055127 (Version 1)
Quarter: 2013Q1

REPORT INFORMATION
  Report Type: Spontaneous
  Country: US (occurrence: US)
  Receive Date: 20130206
  Receipt Date: 20130206
  Transmission Date: 20140127
  Serious: No
  Sender: FDA-Public Use
  Company Number: US-009507513-1301USA013313

PATIENT
  Age: 14 Year
  Sex: Female
  Weight: 57.14 kg

DRUGS (2)
  1. IMPLANON [Suspect]
     Indication: HORMONE THERAPY
     Dosage: 1 ROD FOR 3 YEARS
     Route: 059
     Dates: start: 20110621
  2. IMPLANON [Suspect]
     Indication: SEXUALLY ACTIVE

REACTIONS (2)
  - Metrorrhagia [Unknown]
  - Amenorrhoea [Unknown]
